FAERS Safety Report 6061590-9 (Version None)
Quarter: 2009Q1

REPORT INFORMATION
  Report Type: 
  Country: None (occurrence: None)
  Receive Date: 20090202
  Receipt Date: 20090128
  Transmission Date: 20090719
  Serious: Yes (Hospitalization, Congenital Anomaly)
  Sender: FDA-Public Use
  Company Number: A0652498A

PATIENT
  Sex: Female
  Weight: 3 kg

DRUGS (12)
  1. PAXIL [Suspect]
     Indication: DEPRESSION
     Dates: start: 19960612, end: 20000101
  2. FASTIN [Concomitant]
     Dosage: 30MG TWICE PER DAY
     Dates: start: 19980504, end: 20001212
  3. ASPIRIN,BUTALBITAL,CAFFEINE [Concomitant]
     Dates: start: 19990303
  4. PROMETHAZINE [Concomitant]
     Dates: start: 19990303
  5. DIPHENHYDRAMINE HCL [Concomitant]
     Dates: start: 19990303
  6. PROPRANOLOL [Concomitant]
     Dates: start: 19990303
  7. PROZAC [Concomitant]
     Dates: start: 19961014, end: 19990519
  8. VITAMIN TAB [Concomitant]
  9. TEGRETOL [Concomitant]
  10. AMITRIPTYLINE HCL [Concomitant]
  11. HYDROCODONE COMPOUND [Concomitant]
  12. TYLENOL [Concomitant]

REACTIONS (17)
  - CLEFT PALATE [None]
  - CRANIOSYNOSTOSIS [None]
  - DRUG EXPOSURE DURING PREGNANCY [None]
  - DYSKINESIA [None]
  - DYSMORPHISM [None]
  - EYELID PTOSIS [None]
  - HEART RATE IRREGULAR [None]
  - HYPERMETROPIA [None]
  - MECONIUM STAIN [None]
  - MIGRAINE [None]
  - MUSCLE TIGHTNESS [None]
  - OBSTRUCTIVE AIRWAYS DISORDER [None]
  - PALLOR [None]
  - PHOTOPHOBIA [None]
  - STRABISMUS [None]
  - TOOTH DISORDER [None]
  - TOOTH MALFORMATION [None]
